FAERS Safety Report 7048710-4 (Version None)
Quarter: 2010Q4

REPORT INFORMATION
  Report Type: 
  Country: None (occurrence: None)
  Receive Date: 20101018
  Receipt Date: 20101008
  Transmission Date: 20110411
  Serious: Yes (Death, Hospitalization, Other)
  Sender: FDA-Public Use
  Company Number: US-BIOGENIDEC-2010BI031504

PATIENT
  Age: 69 Year
  Sex: Male

DRUGS (4)
  1. AVONEX [Suspect]
     Indication: MULTIPLE SCLEROSIS
     Route: 030
     Dates: start: 19981001, end: 19991008
  2. AVONEX [Suspect]
     Route: 030
     Dates: start: 20001101
  3. AVONEX [Suspect]
     Route: 030
  4. UNKNOWN NASAL SPRAY [Concomitant]
     Indication: VON WILLEBRAND'S DISEASE
     Dates: start: 20100701

REACTIONS (5)
  - BONE MARROW FAILURE [None]
  - DEATH [None]
  - MYOCARDIAL INFARCTION [None]
  - SEPSIS [None]
  - URINARY TRACT INFECTION [None]
